FAERS Safety Report 8389029-9 (Version None)
Quarter: 2012Q2

REPORT INFORMATION
  Report Type: 
  Country: None (occurrence: None)
  Receive Date: 20120528
  Receipt Date: 20120521
  Transmission Date: 20120825
  Serious: No
  Sender: FDA-Public Use
  Company Number: US-PFIZER INC-2012123649

PATIENT
  Sex: Female

DRUGS (2)
  1. NORGESTREL AND ETHINYL ESTRADIOL [Suspect]
     Indication: OFF LABEL USE
     Dosage: UNK
  2. NORGESTREL AND ETHINYL ESTRADIOL [Suspect]
     Indication: MENSTRUAL DISCOMFORT

REACTIONS (4)
  - ANOVULATORY CYCLE [None]
  - NAUSEA [None]
  - DECREASED APPETITE [None]
  - MOOD ALTERED [None]
